FAERS Safety Report 5149947-1 (Version None)
Quarter: 2006Q4

REPORT INFORMATION
  Report Type: 
  Country: None (occurrence: None)
  Receive Date: 20061108
  Receipt Date: 20061028
  Transmission Date: 20070319
  Serious: Yes (Death, Congenital Anomaly, Other)
  Sender: FDA-Public Use
  Company Number: 2006124639

PATIENT
  Sex: Male
  Weight: 1.3154 kg

DRUGS (3)
  1. ZOLOFT [Suspect]
     Indication: DEPRESSION
     Dates: start: 20050101
  2. ALL OTHER THERAPEUTIC PRODUCTS [Suspect]
     Indication: ACARODERMATITIS
  3. PERMETHRIN [Suspect]

REACTIONS (7)
  - ANAL ATRESIA [None]
  - CONGENITAL GREAT VESSEL ANOMALY [None]
  - DEATH NEONATAL [None]
  - DRUG EXPOSURE DURING PREGNANCY [None]
  - PULMONARY HYPOPLASIA [None]
  - RENAL APLASIA [None]
  - VENTRICULAR SEPTAL DEFECT [None]
